FAERS Safety Report 23830235 (Version 4)
Quarter: 2024Q2

REPORT INFORMATION
  Report Type: Report from Study
  Country: US (occurrence: US)
  Receive Date: 20240508
  Receipt Date: 20240614
  Transmission Date: 20240715
  Serious: Yes (Other)
  Sender: FDA-Public Use
  Company Number: US-JNJFOC-20240478361

PATIENT

DRUGS (6)
  1. CABOTEGRAVIR [Suspect]
     Active Substance: CABOTEGRAVIR
     Indication: HIV infection
     Dosage: 600 MG, QD
     Route: 058
     Dates: start: 20230331, end: 20230331
  2. CABOTEGRAVIR [Suspect]
     Active Substance: CABOTEGRAVIR
     Dosage: 600 MG, QD
     Route: 058
     Dates: start: 20230428, end: 20230428
  3. CABOTEGRAVIR [Suspect]
     Active Substance: CABOTEGRAVIR
     Dosage: FIRST TRIMESTER
     Route: 058
  4. RILPIVIRINE [Suspect]
     Active Substance: RILPIVIRINE
     Indication: HIV infection
     Dosage: 900 MG QD
     Route: 058
     Dates: start: 20230331, end: 20230331
  5. RILPIVIRINE [Suspect]
     Active Substance: RILPIVIRINE
     Dosage: 900 MG QD
     Route: 058
     Dates: start: 20230428, end: 20230428
  6. RILPIVIRINE [Suspect]
     Active Substance: RILPIVIRINE
     Dosage: FIRST TRIMESTER
     Route: 058

REACTIONS (3)
  - Premature delivery [Unknown]
  - Exposure during pregnancy [Recovered/Resolved]
  - Off label use [Unknown]
